FAERS Safety Report 21019849 (Version 4)
Quarter: 2022Q4

REPORT INFORMATION
  Report Type: Report from Study
  Country: FR (occurrence: FR)
  Receive Date: 20220628
  Receipt Date: 20221027
  Transmission Date: 20230112
  Serious: Yes (Hospitalization)
  Sender: FDA-Public Use
  Company Number: FR-JNJFOC-20220637921

PATIENT
  Age: 54 Year
  Sex: Female
  Weight: 65.4 kg

DRUGS (15)
  1. AMIVANTAMAB [Suspect]
     Active Substance: AMIVANTAMAB
     Indication: Non-small cell lung cancer
     Dosage: MOST RECENT DOSE 20-JUN-2022
     Route: 042
     Dates: start: 20220613
  2. CARBOPLATIN [Suspect]
     Active Substance: CARBOPLATIN
     Indication: Non-small cell lung cancer
     Dosage: DAY 1 OF CYCLE 1
     Route: 042
     Dates: start: 20220613, end: 20220613
  3. PEMETREXED [Suspect]
     Active Substance: PEMETREXED
     Indication: Non-small cell lung cancer
     Dosage: DAY 1 OF CYCLE 1
     Route: 042
     Dates: start: 20220613, end: 20220613
  4. LEVOTHYROXINE SODIUM\LIOTHYRONINE SODIUM [Concomitant]
     Active Substance: LEVOTHYROXINE SODIUM\LIOTHYRONINE SODIUM
     Indication: Thyroidectomy
     Route: 048
     Dates: start: 20050101
  5. FOLIC ACID [Concomitant]
     Active Substance: FOLIC ACID
     Indication: Chemotherapy side effect prophylaxis
     Route: 048
     Dates: start: 20220530
  6. VITAMIN B12 [Concomitant]
     Active Substance: CYANOCOBALAMIN
     Indication: Chemotherapy side effect prophylaxis
     Route: 048
     Dates: start: 20220530
  7. METOCLOPRAMIDE [Concomitant]
     Active Substance: METOCLOPRAMIDE
     Indication: Vomiting
     Route: 048
     Dates: start: 20220621, end: 20220621
  8. LOPERAMIDE [Concomitant]
     Active Substance: LOPERAMIDE
     Indication: Dyspepsia
     Route: 048
  9. DOLIPRANE [Concomitant]
     Active Substance: ACETAMINOPHEN
     Indication: Ankle fracture
     Route: 048
     Dates: start: 20221019
  10. GABAPENTIN [Concomitant]
     Active Substance: GABAPENTIN
     Indication: Ankle fracture
     Route: 048
     Dates: start: 20221019
  11. ACUPAN [Concomitant]
     Active Substance: NEFOPAM HYDROCHLORIDE
     Indication: Ankle fracture
     Route: 048
     Dates: start: 20221019
  12. FERROUS FUMARATE [Concomitant]
     Active Substance: FERROUS FUMARATE
     Indication: Ankle fracture
     Route: 048
     Dates: start: 20221019
  13. VITAMIN C [Concomitant]
     Active Substance: ASCORBIC ACID
     Indication: Ankle fracture
     Route: 048
     Dates: start: 20221019
  14. KETOPROFEN [Concomitant]
     Active Substance: KETOPROFEN
     Indication: Ankle fracture
     Route: 048
     Dates: start: 20221019
  15. LANSOPRAZOLE [Concomitant]
     Active Substance: LANSOPRAZOLE
     Indication: Ankle fracture
     Route: 048
     Dates: start: 20221019

REACTIONS (2)
  - Pain in extremity [Not Recovered/Not Resolved]
  - Febrile neutropenia [Recovered/Resolved]

NARRATIVE: CASE EVENT DATE: 20220615
